FAERS Safety Report 8283373-1 (Version None)
Quarter: 2012Q2

REPORT INFORMATION
  Report Type: 
  Country: None (occurrence: None)
  Receive Date: 20120413
  Receipt Date: 20120404
  Transmission Date: 20120825
  Serious: Yes (Hospitalization, Disabling)
  Sender: FDA-Public Use
  Company Number: BR-ASTRAZENECA-2012SE22432

PATIENT
  Age: 81 Year
  Sex: Female

DRUGS (8)
  1. SEROQUEL [Suspect]
     Route: 048
     Dates: start: 20111001, end: 20120101
  2. SEROQUEL [Suspect]
     Indication: HALLUCINATION
     Route: 048
     Dates: start: 20110101, end: 20111001
  3. SEROQUEL [Suspect]
     Route: 048
     Dates: start: 20120301
  4. SEROQUEL [Suspect]
     Indication: RESTLESSNESS
     Route: 048
     Dates: start: 20110101, end: 20111001
  5. SEROQUEL [Suspect]
     Route: 048
     Dates: start: 20111001, end: 20120101
  6. SEROQUEL [Suspect]
     Dosage: 75 MG THREE TIMES A DAY (SEROQUEL 25 MG AND SEROQUEL XRO 50 MG)
     Route: 048
     Dates: start: 20120101
  7. SEROQUEL [Suspect]
     Route: 048
     Dates: start: 20120301
  8. SEROQUEL [Suspect]
     Dosage: 75 MG THREE TIMES A DAY (SEROQUEL 25 MG AND SEROQUEL XRO 50 MG)
     Route: 048
     Dates: start: 20120101

REACTIONS (4)
  - FEMUR FRACTURE [None]
  - RESTLESSNESS [None]
  - OFF LABEL USE [None]
  - FALL [None]
